FAERS Safety Report 4450472-1 (Version None)
Quarter: 2004Q3

REPORT INFORMATION
  Report Type: 
  Country: None (occurrence: None)
  Receive Date: 20040914
  Receipt Date: 20040909
  Transmission Date: 20050211
  Serious: Yes (Life-Threatening)
  Sender: FDA-Public Use
  Company Number: TCI2004A02759

PATIENT
  Age: 46 Year
  Sex: Male

DRUGS (8)
  1. LANSOPRAZOLE [Suspect]
     Indication: REFLUX OESOPHAGITIS
     Dosage: 30 MG (30 MG, 1 IN 1 D)
     Route: 048
     Dates: start: 20040601, end: 20040611
  2. ACTOS [Suspect]
     Indication: DIABETES MELLITUS
     Dosage: 30 MG (30 MG, 1 D)
     Route: 048
     Dates: start: 20040504, end: 20040607
  3. BASEN (VOGLIBOSE) [Suspect]
     Indication: DIABETES MELLITUS
     Dosage: 0.9 MG (0.9 MG, 1 D)
     Route: 048
     Dates: start: 20040505, end: 20040611
  4. AMARYL [Suspect]
     Dosage: 3 MG (3 MG, 1 D)
     Route: 048
     Dates: start: 20040504, end: 20040607
  5. GASTER (FAMOTIDINE) [Suspect]
     Dosage: 40 MG (40 MG, 1 D)
     Route: 048
     Dates: start: 20040504, end: 20040607
  6. EUGLUCON (GLIBENCLAMIDE) [Suspect]
     Route: 048
     Dates: start: 20040607, end: 20040611
  7. MONILAC (LACTULOSE) [Concomitant]
  8. SELBEX (TEPRENONE) [Concomitant]

REACTIONS (6)
  - BAND NEUTROPHIL PERCENTAGE DECREASED [None]
  - GRANULOCYTE COUNT DECREASED [None]
  - LEUKOPENIA [None]
  - PYREXIA [None]
  - REFLUX OESOPHAGITIS [None]
  - WHITE BLOOD CELL COUNT DECREASED [None]
